FAERS Safety Report 13824679 (Version 1)
Quarter: 2017Q3

REPORT INFORMATION
  Report Type: Report from Study
  Country: US (occurrence: US)
  Receive Date: 20170802
  Receipt Date: 20170802
  Transmission Date: 20171127
  Serious: Yes (Other)
  Sender: FDA-Public Use
  Company Number: US-BAYER-2017-147623

PATIENT

DRUGS (1)
  1. ASPIRIN. [Suspect]
     Active Substance: ASPIRIN

REACTIONS (1)
  - Haemorrhage [None]
